FAERS Safety Report 25964103 (Version 1)
Quarter: 2025Q4

REPORT INFORMATION
  Report Type: Spontaneous
  Country: US (occurrence: US)
  Receive Date: 20251027
  Receipt Date: 20251027
  Transmission Date: 20260118
  Serious: No
  Sender: TEVA
  Company Number: US-TEVA-VS-3383359

PATIENT
  Age: 8 Year
  Sex: Male
  Weight: 25 kg

DRUGS (1)
  1. QVAR REDIHALER [Suspect]
     Active Substance: BECLOMETHASONE DIPROPIONATE
     Indication: Asthma
     Dosage: 80MCG/DOSE, INHALATION AEROSOL, PRESCRIBED TO TAKE TWO PUFFS OF THE QVAR REDIHALER 80 MCG TWICE A...
     Route: 055
     Dates: end: 20251013

REACTIONS (4)
  - Insomnia [Unknown]
  - Product use issue [Unknown]
  - Product prescribing error [Unknown]
  - Impetigo [Unknown]
